FAERS Safety Report 25659153 (Version 1)
Quarter: 2025Q3

REPORT INFORMATION
  Report Type: Spontaneous
  Country: US (occurrence: US)
  Receive Date: 20250808
  Receipt Date: 20250808
  Transmission Date: 20251021
  Serious: Yes (Death, Other)
  Sender: CHATTEM
  Company Number: US-OPELLA-2025OHG023888

PATIENT
  Age: 66 Year
  Sex: Male

DRUGS (1)
  1. GOLD BOND ORIGINAL STRENGTH [Suspect]
     Active Substance: MENTHOL
     Indication: Product used for unknown indication

REACTIONS (6)
  - Pleural mesothelioma malignant [Fatal]
  - Sarcomatoid mesothelioma [Fatal]
  - Lung cancer metastatic [Fatal]
  - Acute respiratory failure [Unknown]
  - Metastases to bone [Unknown]
  - Gynaecomastia [Unknown]
